FAERS Safety Report 6047879-8 (Version None)
Quarter: 2009Q1

REPORT INFORMATION
  Report Type: 
  Country: None (occurrence: None)
  Receive Date: 20090122
  Receipt Date: 20090122
  Transmission Date: 20090719
  Serious: Yes (Hospitalization)
  Sender: FDA-Public Use
  Company Number: None

PATIENT
  Age: 57 Year
  Sex: Male

DRUGS (1)
  1. LORATADINE [Suspect]
     Dosage: 10 MG EVERY DAY PO
     Route: 048
     Dates: start: 20081208, end: 20081219

REACTIONS (5)
  - DRUG HYPERSENSITIVITY [None]
  - EAR INFECTION [None]
  - OTITIS EXTERNA [None]
  - OTITIS MEDIA [None]
  - SINUS DISORDER [None]
